FAERS Safety Report 22234494 (Version 1)
Quarter: 2023Q2

REPORT INFORMATION
  Report Type: Spontaneous
  Country: US (occurrence: None)
  Receive Date: 20230420
  Receipt Date: 20230420
  Transmission Date: 20230722
  Serious: No
  Sender: FDA-Public Use
  Company Number: US-ROCHE-3232884

PATIENT
  Sex: Female
  Weight: 43.130 kg

DRUGS (1)
  1. ESBRIET [Suspect]
     Active Substance: PIRFENIDONE
     Indication: Idiopathic pulmonary fibrosis
     Dosage: LAST DOSE WAS ON 15/NOV/2022
     Route: 065
     Dates: start: 202211, end: 20221115

REACTIONS (2)
  - Off label use [Unknown]
  - No adverse event [Unknown]
